FAERS Safety Report 20883565 (Version 1)
Quarter: 2022Q2

REPORT INFORMATION
  Report Type: Spontaneous
  Country: RU (occurrence: None)
  Receive Date: 20220527
  Receipt Date: 20220527
  Transmission Date: 20220720
  Serious: Yes (Other)
  Sender: FDA-Public Use
  Company Number: RU-ROCHE-3104590

PATIENT
  Age: 63 Year
  Sex: Male

DRUGS (2)
  1. VEMURAFENIB [Suspect]
     Active Substance: VEMURAFENIB
     Indication: Product used for unknown indication
     Route: 065
  2. COBIMETINIB [Suspect]
     Active Substance: COBIMETINIB
     Indication: Product used for unknown indication
     Route: 048

REACTIONS (5)
  - Coronavirus pneumonia [Unknown]
  - Pulmonary fibrosis [Unknown]
  - Metastatic lymphoma [Unknown]
  - Disease recurrence [Unknown]
  - Skin toxicity [Unknown]
